FAERS Safety Report 12124035 (Version 5)
Quarter: 2016Q2

REPORT INFORMATION
  Report Type: Spontaneous
  Country: US (occurrence: US)
  Receive Date: 20160229
  Receipt Date: 20160505
  Transmission Date: 20160815
  Serious: Yes (Hospitalization)
  Sender: FDA-Public Use
  Company Number: US-PFIZER INC-2016102819

PATIENT
  Age: 63 Year
  Sex: Female
  Weight: 56.69 kg

DRUGS (5)
  1. IBRANCE [Suspect]
     Active Substance: PALBOCICLIB
     Dosage: 75 MG, CYCLIC (DAY 1-21 Q28 DAYS)
     Route: 048
     Dates: start: 20160217
  2. IBRANCE [Suspect]
     Active Substance: PALBOCICLIB
     Dosage: UNK, CYCLIC (75 MG ALTERNATING WITH 100 MG MONDAY/ WEDNESDAY/FRIDAY (MWF))
     Route: 048
     Dates: start: 20160202, end: 20160426
  3. IBRANCE [Suspect]
     Active Substance: PALBOCICLIB
     Dosage: UNK
  4. IBRANCE [Suspect]
     Active Substance: PALBOCICLIB
     Indication: BREAST CANCER METASTATIC
     Dosage: 125 MG, CYCLIC (DAY 1 - 21 Q 28 DAYS)
     Route: 048
     Dates: start: 20160202, end: 20160205
  5. IBRANCE [Suspect]
     Active Substance: PALBOCICLIB
     Dosage: 75 MG, ALTERNATE DAY (EVERY OTHER DAY )

REACTIONS (14)
  - Dyspnoea [Recovered/Resolved]
  - Decreased appetite [Recovered/Resolved]
  - Drug dose omission [Unknown]
  - Asthenia [Recovered/Resolved]
  - Breast cancer metastatic [Unknown]
  - Sinusitis [Unknown]
  - Cough [Recovered/Resolved]
  - Diarrhoea [Unknown]
  - Fluid retention [Unknown]
  - Fatigue [Recovered/Resolved]
  - Nausea [Recovered/Resolved]
  - Sleep disorder [Unknown]
  - Disease progression [Unknown]
  - Pyrexia [Recovered/Resolved]

NARRATIVE: CASE EVENT DATE: 20160202
